FAERS Safety Report 7782980-X (Version None)
Quarter: 2011Q3

REPORT INFORMATION
  Report Type: 
  Country: None (occurrence: None)
  Receive Date: 20110928
  Receipt Date: 20110920
  Transmission Date: 20111222
  Serious: Yes (Hospitalization)
  Sender: FDA-Public Use
  Company Number: BR-AMGEN-BRACT2011029982

PATIENT
  Age: 22 Year
  Sex: Male

DRUGS (6)
  1. CINACALCET HYDROCHLORIDE [Suspect]
     Indication: HYPERPARATHYROIDISM SECONDARY
     Dates: start: 20071106, end: 20110605
  2. RANITIDINE [Concomitant]
     Dosage: 150 MG, QD
     Route: 048
     Dates: start: 20100308
  3. BLINDED PLACEBO [Suspect]
     Indication: HYPERPARATHYROIDISM SECONDARY
     Dates: start: 20071106, end: 20110605
  4. ATENOLOL [Concomitant]
     Dosage: 50 MG, BID
     Route: 048
     Dates: start: 20090102
  5. SEVELAMER [Concomitant]
     Dosage: 6400 MG, QD
     Route: 048
     Dates: start: 20100318
  6. LOSARTAN POTASSIUM [Concomitant]
     Dosage: 50 MG, BID
     Route: 048
     Dates: start: 20091211

REACTIONS (1)
  - HYPERPARATHYROIDISM SECONDARY [None]
